FAERS Safety Report 23132376 (Version 1)
Quarter: 2023Q4

REPORT INFORMATION
  Report Type: Spontaneous
  Country: IT (occurrence: IT)
  Receive Date: 20231101
  Receipt Date: 20231101
  Transmission Date: 20240109
  Serious: Yes (Hospitalization, Other)
  Sender: FDA-Public Use
  Company Number: None

PATIENT
  Age: 80 Year
  Sex: Female

DRUGS (3)
  1. ENOXAPARIN SODIUM [Suspect]
     Active Substance: ENOXAPARIN SODIUM
     Dosage: 6000 IU
  2. CHOLECALCIFEROL [Concomitant]
     Active Substance: CHOLECALCIFEROL
     Dosage: UNK
  3. LANSOPRAZOLE [Concomitant]
     Active Substance: LANSOPRAZOLE
     Dosage: UNK

REACTIONS (3)
  - Hyponatraemia [Not Recovered/Not Resolved]
  - Microcytic anaemia [Recovering/Resolving]
  - Hypokalaemia [Not Recovered/Not Resolved]

NARRATIVE: CASE EVENT DATE: 20230905
